FAERS Safety Report 6356325-6 (Version None)
Quarter: 2009Q3

REPORT INFORMATION
  Report Type: 
  Country: None (occurrence: None)
  Receive Date: 20090915
  Receipt Date: 20090911
  Transmission Date: 20100115
  Serious: Yes (Hospitalization, Other)
  Sender: FDA-Public Use
  Company Number: FR-BAYER-200718344GPV

PATIENT
  Age: 57 Year
  Sex: Male
  Weight: 60 kg

DRUGS (7)
  1. KOGENATE [Suspect]
     Indication: FACTOR VIII DEFICIENCY
     Route: 042
     Dates: start: 20070618, end: 20070724
  2. KOGENATE [Suspect]
     Route: 042
     Dates: start: 20070618, end: 20070724
  3. KOGENATE [Suspect]
     Route: 042
     Dates: start: 20070618, end: 20070724
  4. KOGENATE [Suspect]
     Route: 042
     Dates: start: 20070618, end: 20070724
  5. HELIXATE [Suspect]
     Indication: FACTOR VIII DEFICIENCY
     Route: 042
     Dates: start: 20070625
  6. HELIXATE [Suspect]
     Route: 042
     Dates: start: 20070625
  7. HELIXATE [Suspect]
     Route: 042
     Dates: start: 20070625

REACTIONS (2)
  - FACTOR VIII INHIBITION [None]
  - HAEMATOMA [None]
